FAERS Safety Report 13065437 (Version 6)
Quarter: 2017Q1

REPORT INFORMATION
  Report Type: Report from Study
  Country: BR (occurrence: BR)
  Receive Date: 20161227
  Receipt Date: 20170329
  Transmission Date: 20170428
  Serious: Yes (Death, Hospitalization)
  Sender: FDA-Public Use
  Company Number: BR-PFIZER INC-2016576840

PATIENT
  Age: 79 Year
  Sex: Female
  Weight: 59 kg

DRUGS (7)
  1. GRANISETRON [Concomitant]
     Active Substance: GRANISETRON
     Indication: NAUSEA
     Dosage: 3 MG, CYCLIC (EVERY 21 DAYS)
     Route: 042
     Dates: start: 20161201, end: 20161201
  2. DIPHENHYDRAMINE CITRATE/IBUPROFEN [Concomitant]
     Indication: NAUSEA
     Dosage: 50 MG, CYCLIC (EVERY 21 DAYS)
     Route: 042
     Dates: start: 20161201, end: 20161201
  3. PF-06439535 [Suspect]
     Active Substance: INVESTIGATIONAL PRODUCT
     Indication: LUNG ADENOCARCINOMA
     Dosage: 880 MG, CYCLIC (EACH 21 DAYS)
     Route: 042
     Dates: start: 20161201, end: 20161201
  4. PROPRANOLOL [Concomitant]
     Active Substance: PROPRANOLOL HYDROCHLORIDE
     Indication: HYPERTENSION
     Dosage: 40 MG, EVERY DAY
     Route: 048
     Dates: start: 20160101
  5. CARBOPLATIN. [Suspect]
     Active Substance: CARBOPLATIN
     Indication: LUNG ADENOCARCINOMA
     Dosage: 410.6 MG, CYCLIC (EACH 21 DAYS)
     Route: 042
     Dates: start: 20161201, end: 20161201
  6. RANITIDINE. [Concomitant]
     Active Substance: RANITIDINE
     Indication: NAUSEA
     Dosage: 50 MG, CYCLIC (EVERY 21 DAYS)
     Route: 042
     Dates: start: 20161201, end: 20161201
  7. PACLITAXEL. [Suspect]
     Active Substance: PACLITAXEL
     Indication: LUNG ADENOCARCINOMA
     Dosage: 271.25 MG, CYCLIC (EACH 21 DAYS)
     Route: 042
     Dates: start: 20161201, end: 20161201

REACTIONS (1)
  - Pneumonia [Fatal]

NARRATIVE: CASE EVENT DATE: 20161208
